FAERS Safety Report 15201816 (Version 1)
Quarter: 2018Q3

REPORT INFORMATION
  Report Type: Spontaneous
  Country: US (occurrence: US)
  Receive Date: 20180726
  Receipt Date: 20180726
  Transmission Date: 20181010
  Serious: No
  Sender: FDA-Public Use
  Company Number: US-MYLANLABS-2018M1050630

PATIENT
  Sex: Female

DRUGS (2)
  1. JUNEL [Concomitant]
     Active Substance: ETHINYL ESTRADIOL\NORETHINDRONE ACETATE
     Indication: TURNER^S SYNDROME
     Dosage: UNK
  2. ESTRADIOL. [Suspect]
     Active Substance: ESTRADIOL
     Indication: TURNER^S SYNDROME
     Dosage: UNK
     Route: 062

REACTIONS (2)
  - Application site rash [Recovered/Resolved]
  - Rubber sensitivity [Not Recovered/Not Resolved]
